FAERS Safety Report 23852498 (Version 2)
Quarter: 2024Q2

REPORT INFORMATION
  Report Type: Spontaneous
  Country: US (occurrence: US)
  Receive Date: 20240514
  Receipt Date: 20240527
  Transmission Date: 20240716
  Serious: Yes (Other)
  Sender: FDA-Public Use
  Company Number: US-TEVA-VS-3197035

PATIENT
  Age: 33 Year
  Sex: Male

DRUGS (2)
  1. HYDROMORPHONE [Suspect]
     Active Substance: HYDROMORPHONE
     Indication: Sickle cell anaemia with crisis
     Dosage: BOLUS
     Route: 065
  2. KETAMINE [Concomitant]
     Active Substance: KETAMINE
     Indication: Sickle cell anaemia with crisis

REACTIONS (3)
  - Hyperaesthesia [Unknown]
  - Rhabdomyolysis [Recovered/Resolved]
  - Encephalopathy [Recovering/Resolving]
